FAERS Safety Report 12809772 (Version 1)
Quarter: 2016Q4

REPORT INFORMATION
  Report Type: Report from Study
  Country: US (occurrence: US)
  Receive Date: 20161005
  Receipt Date: 20161005
  Transmission Date: 20170207
  Serious: Yes (Hospitalization, Other)
  Sender: FDA-Public Use
  Company Number: US-ROCHE-1197842

PATIENT
  Age: 62 Year
  Sex: Female
  Weight: 66.2 kg

DRUGS (7)
  1. PACLITAXEL. [Suspect]
     Active Substance: PACLITAXEL
     Dosage: LAST ADMINSITERED DOSE WAS ON 14/NOV/2012.TOTAL ADMIN DOSE WAS 291 MG
     Route: 042
     Dates: start: 20121114
  2. ABT-888 [Suspect]
     Active Substance: VELIPARIB
     Indication: OVARIAN EPITHELIAL CANCER
     Route: 048
     Dates: start: 20120907
  3. PACLITAXEL. [Suspect]
     Active Substance: PACLITAXEL
     Indication: OVARIAN EPITHELIAL CANCER
     Route: 042
     Dates: start: 20121112
  4. ABT-888 [Suspect]
     Active Substance: VELIPARIB
     Dosage: LAST ADMINSITERED DOSE WAS ON 18/NOV/2012.TOTAL ADMIN DOSE WAS 4200 MG
     Route: 048
     Dates: start: 20121114
  5. CARBOPLATIN. [Suspect]
     Active Substance: CARBOPLATIN
     Indication: OVARIAN EPITHELIAL CANCER
     Dosage: 6 AUC OVER 30 MIN ON DAY 1.
     Route: 042
     Dates: start: 20121112
  6. CARBOPLATIN. [Suspect]
     Active Substance: CARBOPLATIN
     Dosage: 6 AUC OVER 30 MIN ON DAY 1. LAST ADMINSITERED DOSE WAS ON 14/NOV/2012.TOTAL ADMIN DOSE WAS  359 MG
     Route: 042
     Dates: start: 20121114
  7. BEVACIZUMAB [Suspect]
     Active Substance: BEVACIZUMAB
     Indication: OVARIAN EPITHELIAL CANCER
     Dosage: LAST ADMINSITERED DOSE WAS ON 14/NOV/2012.TOTAL ADMIN DOSE WAS 907 MG
     Route: 042
     Dates: start: 20120907, end: 20131213

REACTIONS (10)
  - Febrile neutropenia [Recovered/Resolved]
  - Febrile neutropenia [Unknown]
  - White blood cell count decreased [Unknown]
  - Hyperkalaemia [Unknown]
  - Hypertension [Unknown]
  - Fatigue [Unknown]
  - Neutrophil count decreased [Unknown]
  - Abdominal pain [Unknown]
  - Abdominal pain [Recovered/Resolved]
  - Anaemia [Unknown]

NARRATIVE: CASE EVENT DATE: 20121123
